FAERS Safety Report 7546825-5 (Version None)
Quarter: 2011Q2

REPORT INFORMATION
  Report Type: 
  Country: None (occurrence: None)
  Receive Date: 20110607
  Receipt Date: 20110523
  Transmission Date: 20111010
  Serious: Yes (Hospitalization)
  Sender: FDA-Public Use
  Company Number: 2011MA006327

PATIENT
  Age: 68 Year
  Sex: Male

DRUGS (1)
  1. BICALUTAMIDE [Suspect]
     Indication: PROSTATE CANCER METASTATIC
     Dosage: 50 MG;QD;

REACTIONS (6)
  - PULMONARY FIBROSIS [None]
  - PNEUMONIA [None]
  - INTERSTITIAL LUNG DISEASE [None]
  - BRONCHIECTASIS [None]
  - LUNG CYST [None]
  - HAEMOGLOBIN DECREASED [None]
